FAERS Safety Report 7406282-6 (Version None)
Quarter: 2011Q2

REPORT INFORMATION
  Report Type: 
  Country: None (occurrence: None)
  Receive Date: 20110401
  Receipt Date: 20110322
  Transmission Date: 20111010
  Serious: Yes (Hospitalization)
  Sender: FDA-Public Use
  Company Number: 2011SP012868

PATIENT
  Age: 87 Year
  Sex: Male
  Weight: 61 kg

DRUGS (11)
  1. NITRODERM (GLYCERYL TRINITRATE /00003201/) [Suspect]
     Indication: PRODUCT USED FOR UNKNOWN INDICATION
     Dosage: 5 MG;QD;TDER
     Route: 062
     Dates: end: 20110207
  2. REMERON [Suspect]
     Indication: DEPRESSION
     Dosage: 45 MG;QPM;PO ; 15 MG;QD;PO
     Route: 048
     Dates: end: 20110208
  3. REMERON [Suspect]
     Indication: DEPRESSION
     Dosage: 45 MG;QPM;PO ; 15 MG;QD;PO
     Route: 048
     Dates: start: 20110210
  4. ZEFO [Concomitant]
  5. PRADIF (TAMSULOSIN HYDROCHLORIDE) [Suspect]
     Indication: PROSTATE CANCER
     Dosage: 400 MG;QD;PO
     Route: 048
  6. IMOVANE (ZOPICLONE) [Suspect]
     Indication: PRODUCT USED FOR UNKNOWN INDICATION
     Dosage: 7.5 MG;QD;PO
     Route: 048
     Dates: end: 20110207
  7. PANTOZOL [Concomitant]
  8. SORBISTERIT [Concomitant]
  9. TOREM (TORASEMIDE) [Suspect]
     Indication: PRODUCT USED FOR UNKNOWN INDICATION
     Dosage: 10 MG;QD;PO
     Route: 048
     Dates: end: 20110207
  10. PROSCAR [Concomitant]
  11. RECORMON [Concomitant]

REACTIONS (14)
  - HYPOTENSION [None]
  - FALL [None]
  - C-REACTIVE PROTEIN INCREASED [None]
  - BLOOD LACTATE DEHYDROGENASE INCREASED [None]
  - CONTUSION [None]
  - TACHYARRHYTHMIA [None]
  - SLEEP DISORDER [None]
  - BLOOD CREATINE PHOSPHOKINASE INCREASED [None]
  - SUICIDE ATTEMPT [None]
  - BLOOD ALKALINE PHOSPHATASE INCREASED [None]
  - INCORRECT DOSE ADMINISTERED [None]
  - ANTIDEPRESSANT DRUG LEVEL INCREASED [None]
  - ASPARTATE AMINOTRANSFERASE INCREASED [None]
  - DRUG CLEARANCE DECREASED [None]
